FAERS Safety Report 8618010-7 (Version None)
Quarter: 2012Q3

REPORT INFORMATION
  Report Type: 
  Country: None (occurrence: None)
  Receive Date: 20120824
  Receipt Date: 20120130
  Transmission Date: 20120928
  Serious: No
  Sender: FDA-Public Use
  Company Number: US-ASTRAZENECA-2012SE06346

PATIENT
  Age: 56 Year
  Sex: Male
  Weight: 108.9 kg

DRUGS (5)
  1. METOPROLOL TARTRATE [Concomitant]
  2. ANTIBIOTIC TREATMENT [Concomitant]
  3. DIOVAN [Concomitant]
  4. SYMBICORT [Suspect]
     Indication: BRONCHITIS CHRONIC
     Dosage: 2 PUFFS BID
     Route: 055
  5. HYDROCHLOROTHIAZIDE [Concomitant]

REACTIONS (4)
  - SLEEP DISORDER DUE TO GENERAL MEDICAL CONDITION, INSOMNIA TYPE [None]
  - WHEEZING [None]
  - SNEEZING [None]
  - INCREASED UPPER AIRWAY SECRETION [None]
